FAERS Safety Report 6637691-0 (Version None)
Quarter: 2010Q1

REPORT INFORMATION
  Report Type: 
  Country: None (occurrence: None)
  Receive Date: 20100312
  Receipt Date: 20100302
  Transmission Date: 20100710
  Serious: Yes (Other)
  Sender: FDA-Public Use
  Company Number: 2010EN000082

PATIENT
  Age: 51 Year
  Sex: Male

DRUGS (25)
  1. ABELCET [Suspect]
     Indication: PNEUMONIA FUNGAL
     Dosage: 500 MG; QD;IV
     Route: 042
     Dates: start: 20100205, end: 20100215
  2. ROVAMYCIN [Concomitant]
  3. PENICILLIN G [Concomitant]
  4. NORADRENALIN [Concomitant]
  5. CLONIDINE [Concomitant]
  6. HUMULIN R [Concomitant]
  7. FUROSEMIDE [Concomitant]
  8. POTASSIUM CHLORIDE [Concomitant]
  9. AMINOPHYLLINE [Concomitant]
  10. SODIUM CHLORIDE [Concomitant]
  11. TIAPRIDE [Concomitant]
  12. LEVOMEPRAZOLE [Concomitant]
  13. HALOPERIDOL [Concomitant]
  14. FRAXIPARINE [Concomitant]
  15. OMEPRAZOLE [Concomitant]
  16. AMBROBENE [Concomitant]
  17. ACETYLCYSTEINE [Concomitant]
  18. METOCLOPRAMIDE [Concomitant]
  19. MAGNESIUM SULFATE [Concomitant]
  20. SOLU-MEDROL [Concomitant]
  21. CLOMETHIAZOLE [Concomitant]
  22. DISTIGMINE [Concomitant]
  23. HYLAK [Concomitant]
  24. LACTOBACILLUS [Concomitant]
  25. . [Concomitant]

REACTIONS (6)
  - ERYTHEMA [None]
  - HYPERTENSION [None]
  - INFUSION RELATED REACTION [None]
  - SECRETION DISCHARGE [None]
  - SINUS TACHYCARDIA [None]
  - TREMOR [None]
